FAERS Safety Report 7326051-5 (Version None)
Quarter: 2011Q1

REPORT INFORMATION
  Report Type: 
  Country: None (occurrence: None)
  Receive Date: 20110302
  Receipt Date: 20110224
  Transmission Date: 20110831
  Serious: No
  Sender: FDA-Public Use
  Company Number: US-TEVA-268725USA

PATIENT
  Sex: Male
  Weight: 79.45 kg

DRUGS (3)
  1. SERETIDE                           /01420901/ [Concomitant]
     Route: 055
  2. PREDNISONE [Concomitant]
     Route: 048
  3. ALBUTEROL SULFATE AUTOHALER [Suspect]
     Indication: ASTHMA
     Route: 055

REACTIONS (2)
  - ASTHMA [None]
  - BREATH ALCOHOL TEST POSITIVE [None]
